FAERS Safety Report 10671619 (Version 1)
Quarter: 2014Q4

REPORT INFORMATION
  Report Type: Spontaneous
  Country: US (occurrence: None)
  Receive Date: 20141222
  Receipt Date: 20141222
  Transmission Date: 20150529
  Serious: No
  Sender: FDA-Public Use
  Company Number: None

PATIENT
  Age: 38 Year
  Sex: Female
  Weight: 104.33 kg

DRUGS (1)
  1. WELLBUTRIN XL [Suspect]
     Active Substance: BUPROPION HYDROCHLORIDE
     Indication: BIPOLAR DISORDER
     Dosage: 1 PILLS ONCE DAILY TAKEN BY MOUTH
     Route: 048

REACTIONS (3)
  - Pruritus [None]
  - Rash [None]
  - Product substitution issue [None]

NARRATIVE: CASE EVENT DATE: 20141017
